FAERS Safety Report 7629887-6 (Version None)
Quarter: 2011Q3

REPORT INFORMATION
  Report Type: 
  Country: None (occurrence: None)
  Receive Date: 20110722
  Receipt Date: 20110713
  Transmission Date: 20111222
  Serious: Yes (Hospitalization)
  Sender: FDA-Public Use
  Company Number: GB-JNJFOC-20110705636

PATIENT
  Age: 28 Year
  Sex: Male

DRUGS (5)
  1. DICLOFENAC SODIUM [Suspect]
     Indication: GOUT
     Route: 048
     Dates: start: 20060701, end: 20110706
  2. CITALOPRAM [Concomitant]
     Indication: PRODUCT USED FOR UNKNOWN INDICATION
  3. ACETAMINOPHEN [Suspect]
     Route: 048
  4. ACETAMINOPHEN [Suspect]
     Indication: PAIN
     Route: 048
     Dates: start: 20060701, end: 20110706
  5. ALLOPURINOL [Concomitant]
     Indication: PRODUCT USED FOR UNKNOWN INDICATION

REACTIONS (6)
  - LIVER FUNCTION TEST ABNORMAL [None]
  - HEPATITIS ACUTE [None]
  - THROMBOSIS [None]
  - ACUTE HEPATIC FAILURE [None]
  - CONJUNCTIVAL HAEMORRHAGE [None]
  - VOMITING [None]
